FAERS Safety Report 5477772-0 (Version None)
Quarter: 2007Q3

REPORT INFORMATION
  Report Type: 
  Country: None (occurrence: None)
  Receive Date: 20070905
  Receipt Date: 20060922
  Transmission Date: 20080115
  Serious: Yes (Disabling)
  Sender: FDA-Public Use
  Company Number: WAES 0609USA05534

PATIENT
  Age: 55 Year
  Sex: Female

DRUGS (10)
  1. MAXALT [Suspect]
     Indication: MIGRAINE
     Dosage: 10 MG/PRN/PO
     Route: 048
     Dates: start: 20060922, end: 20060922
  2. BUSPAR [Concomitant]
  3. EFFEXOR XR [Concomitant]
  4. ESGIC-PLUS TABLETS [Concomitant]
  5. FIORICET TABLETS [Concomitant]
  6. FIORINAL [Concomitant]
  7. TRILEPTAL [Concomitant]
  8. VALIUM [Concomitant]
  9. TRAZODONE HYDROCHLORIDE [Concomitant]
  10. VITAMINS (UNSPECIFIED) [Concomitant]

REACTIONS (3)
  - HYPOAESTHESIA [None]
  - MUSCULOSKELETAL STIFFNESS [None]
  - PARAESTHESIA [None]
